FAERS Safety Report 9114088 (Version 1)
Quarter: 2013Q1

REPORT INFORMATION
  Report Type: Spontaneous
  Country: BR (occurrence: BR)
  Receive Date: 20130208
  Receipt Date: 20130208
  Transmission Date: 20140127
  Serious: Yes (Other)
  Sender: FDA-Public Use
  Company Number: BR-PFIZER INC-2013049119

PATIENT
  Sex: Female

DRUGS (1)
  1. CHAMPIX [Suspect]
     Dosage: UNK

REACTIONS (7)
  - Lung neoplasm malignant [Unknown]
  - Optic nerve injury [Unknown]
  - Nephropathy [Unknown]
  - Venous occlusion [Unknown]
  - Hypertension [Unknown]
  - Glucose tolerance impaired [Unknown]
  - Hypersensitivity [Unknown]
